FAERS Safety Report 4477869-8 (Version None)
Quarter: 2004Q4

REPORT INFORMATION
  Report Type: 
  Country: None (occurrence: None)
  Receive Date: 20041014
  Receipt Date: 20041006
  Transmission Date: 20050328
  Serious: Yes (Death)
  Sender: FDA-Public Use
  Company Number: 2004AP05122

PATIENT
  Age: 55 Year
  Sex: Female

DRUGS (1)
  1. ARIMIDEX [Suspect]
     Indication: BREAST CANCER
     Dosage: 1 MG DAILY; PO
     Route: 048

REACTIONS (13)
  - CARDIOMEGALY [None]
  - DRUG INEFFECTIVE [None]
  - DYSPNOEA [None]
  - HEART RATE INCREASED [None]
  - HEMIPARESIS [None]
  - HYPOGLOSSAL NERVE DISORDER [None]
  - PARALYSIS [None]
  - PULMONARY ARTERY DILATATION [None]
  - PULMONARY EMBOLISM [None]
  - PULMONARY THROMBOSIS [None]
  - TUMOUR EMBOLISM [None]
  - VENTILATION/PERFUSION SCAN ABNORMAL [None]
  - VIIITH NERVE LESION [None]
